FAERS Safety Report 23099636 (Version 2)
Quarter: 2023Q4

REPORT INFORMATION
  Report Type: Spontaneous
  Country: DE (occurrence: DE)
  Receive Date: 20231024
  Receipt Date: 20231106
  Transmission Date: 20240109
  Serious: Yes (Death)
  Sender: FDA-Public Use
  Company Number: DE-BoehringerIngelheim-2023-BI-268650

PATIENT
  Age: 67 Year
  Sex: Male

DRUGS (2)
  1. NINTEDANIB [Suspect]
     Active Substance: NINTEDANIB
     Indication: Systemic scleroderma
  2. MYCOPHENOLATE MOFETIL [Suspect]
     Active Substance: MYCOPHENOLATE MOFETIL
     Indication: Product used for unknown indication

REACTIONS (2)
  - Death [Fatal]
  - Diarrhoea [Unknown]
